FAERS Safety Report 10452959 (Version 6)
Quarter: 2015Q2

REPORT INFORMATION
  Report Type: Report from Study
  Country: US (occurrence: US)
  Receive Date: 20140915
  Receipt Date: 20150415
  Transmission Date: 20150821
  Serious: Yes (Hospitalization, Other)
  Sender: FDA-Public Use
  Company Number: US-ACTELION-A-NJ2014-104886

PATIENT
  Age: 78 Year
  Sex: Female

DRUGS (13)
  1. OXYGEN. [Concomitant]
     Active Substance: OXYGEN
  2. CRESTOR [Concomitant]
     Active Substance: ROSUVASTATIN CALCIUM
     Dosage: 20 MG, UNK
     Dates: start: 20050208
  3. TRAMADOL [Concomitant]
     Active Substance: TRAMADOL
     Dosage: 50 MG, PRN
  4. ASPIRIN. [Concomitant]
     Active Substance: ASPIRIN
     Dosage: 81 MG, QD
  5. FLEXERIL [Concomitant]
     Active Substance: CYCLOBENZAPRINE HYDROCHLORIDE
     Dosage: 10 MG, PRN
  6. WARFARIN [Concomitant]
     Active Substance: WARFARIN
     Dosage: 1 TO 3 MG, QD
     Dates: start: 20050208
  7. LEVOTHYROXINE [Concomitant]
     Active Substance: LEVOTHYROXINE
     Dosage: 1000 MCG, QD
  8. METOPROLOL [Concomitant]
     Active Substance: METOPROLOL
     Dosage: 100 MG, UNK
     Dates: start: 20050208
  9. MACITENTAN [Suspect]
     Active Substance: MACITENTAN
     Indication: PULMONARY ARTERIAL HYPERTENSION
     Dosage: 10 MG, QD
     Route: 048
     Dates: start: 20140603
  10. VITAMIN D3 [Concomitant]
     Active Substance: CHOLECALCIFEROL
     Dosage: 1000 U, UNK
     Dates: start: 201502
  11. ACETAMINOPHEN. [Concomitant]
     Active Substance: ACETAMINOPHEN
     Dosage: 1000 MG, PRN
  12. NITROSTAT [Concomitant]
     Active Substance: NITROGLYCERIN
     Dosage: 0.4 MG, PRN
  13. ZETIA [Concomitant]
     Active Substance: EZETIMIBE
     Dosage: 10 MG, UNK

REACTIONS (22)
  - Atypical pneumonia [Unknown]
  - Cholelithiasis [Recovered/Resolved]
  - Cardiac pacemaker insertion [Unknown]
  - Gait disturbance [Recovered/Resolved]
  - Cardiac disorder [Unknown]
  - Blood pressure decreased [Unknown]
  - Pancreatic disorder [Unknown]
  - Pneumonia [Recovered/Resolved]
  - Chest pain [Unknown]
  - Cardiac failure congestive [Recovered/Resolved]
  - Cardiac failure [Unknown]
  - Aspiration pleural cavity [Unknown]
  - Faeces discoloured [Not Recovered/Not Resolved]
  - Liver disorder [Unknown]
  - Dyspnoea [Recovered/Resolved]
  - Condition aggravated [Not Recovered/Not Resolved]
  - Cholecystectomy [Unknown]
  - Pulmonary arterial hypertension [Not Recovered/Not Resolved]
  - Pleural effusion [Unknown]
  - Anaemia [Unknown]
  - Heart rate irregular [Unknown]
  - Pulmonary arterial pressure increased [Unknown]

NARRATIVE: CASE EVENT DATE: 201408
